FAERS Safety Report 21012229 (Version 4)
Quarter: 2022Q3

REPORT INFORMATION
  Report Type: Report from Study
  Country: US (occurrence: US)
  Receive Date: 20220627
  Receipt Date: 20220923
  Transmission Date: 20221027
  Serious: Yes (Other)
  Sender: FDA-Public Use
  Company Number: US-NOVARTISPH-NVSC2022US145052

PATIENT
  Sex: Male

DRUGS (3)
  1. ENTRESTO [Suspect]
     Active Substance: SACUBITRIL\VALSARTAN
     Indication: Cardiac failure
     Dosage: 1 DOSAGE FORM, BID (24/26 MG)
     Route: 048
  2. ENTRESTO [Suspect]
     Active Substance: SACUBITRIL\VALSARTAN
     Dosage: 1 DOSAGE FORM, BID
     Route: 048
  3. ENTRESTO [Suspect]
     Active Substance: SACUBITRIL\VALSARTAN
     Dosage: 0.5 DOSAGE FORM (HALF PILL IN MORNING AND HALF PILL AT NIGHT)IN
     Route: 065

REACTIONS (7)
  - Myocardial infarction [Unknown]
  - Renal impairment [Unknown]
  - Weight increased [Unknown]
  - Gastrointestinal polyp [Unknown]
  - Weight decreased [Recovering/Resolving]
  - Cough [Unknown]
  - Wrong technique in product usage process [Unknown]
